FAERS Safety Report 7239010-8 (Version None)
Quarter: 2011Q1

REPORT INFORMATION
  Report Type: 
  Country: None (occurrence: None)
  Receive Date: 20110121
  Receipt Date: 20101217
  Transmission Date: 20110831
  Serious: Yes (Hospitalization)
  Sender: FDA-Public Use
  Company Number: JP-AMGEN-US389540

PATIENT

DRUGS (17)
  1. ALFAROL [Concomitant]
     Dosage: .5 A?G, QD
     Route: 048
  2. DIFLUCORTOLONE VALERATE/LIDOCAINE [Concomitant]
     Dosage: UNK UNK, UNK
     Route: 061
  3. PRAVASTATIN SODIUM [Concomitant]
     Dosage: 10 MG, QD
     Route: 048
  4. WARFARIN POTASSIUM [Concomitant]
     Dosage: 4 MG, QD
     Route: 048
  5. TRIAZOLAM [Concomitant]
     Dosage: .25 G, QD
     Route: 048
  6. ENBREL [Suspect]
     Indication: RHEUMATOID ARTHRITIS
     Dosage: 50 MG, QWK
     Route: 058
     Dates: start: 20091201, end: 20100114
  7. ENBREL [Suspect]
     Dosage: UNK
     Route: 058
     Dates: start: 20091201
  8. PREDNISOLONE [Concomitant]
     Dosage: 5 MG, UNK
     Route: 048
  9. RHEUMATREX [Suspect]
     Dosage: UNK UNK, UNK
     Route: 048
     Dates: start: 20091101, end: 20100128
  10. MELOXICAM [Concomitant]
     Dosage: 10 MG, QD
     Route: 048
  11. PREDNISOLONE [Concomitant]
     Indication: RHEUMATOID ARTHRITIS
     Dosage: 5 MG, QD
     Route: 048
  12. RHEUMATREX [Suspect]
     Dosage: UNK UNK, UNK
     Dates: start: 20040101
  13. FOLIAMIN [Concomitant]
     Dosage: 2.5 MG, QWK
     Route: 048
     Dates: start: 20091001
  14. RHEUMATREX [Suspect]
     Dosage: 8 MG, QWK
     Route: 048
     Dates: start: 20100209
  15. ELCATONIN [Concomitant]
     Dosage: UNK UNK, UNK
     Route: 030
  16. REBAMIPIDE [Concomitant]
     Dosage: 300 MG, QD
     Route: 048
  17. AMLODIPINE BESYLATE [Concomitant]
     Dosage: 5 MG, QD
     Route: 048

REACTIONS (1)
  - ORGANISING PNEUMONIA [None]
